FAERS Safety Report 12074441 (Version 1)
Quarter: 2016Q1

REPORT INFORMATION
  Report Type: Spontaneous
  Country: CA (occurrence: CA)
  Receive Date: 20160212
  Receipt Date: 20160212
  Transmission Date: 20160526
  Serious: Yes (Other)
  Sender: FDA-Public Use
  Company Number: CA-PFIZER INC-2016069754

PATIENT
  Age: 26 Year
  Weight: 91 kg

DRUGS (2)
  1. CONTRACEPTIVES [Concomitant]
     Active Substance: UNSPECIFIED INGREDIENT
  2. CHAMPIX [Suspect]
     Active Substance: VARENICLINE TARTRATE
     Indication: SMOKING CESSATION THERAPY
     Dosage: 1 DF, 2X/DAY
     Route: 048

REACTIONS (11)
  - Headache [Unknown]
  - Self-injurious ideation [Unknown]
  - Aggression [Unknown]
  - Nightmare [Unknown]
  - Tinnitus [Unknown]
  - Stress [Unknown]
  - Abnormal dreams [Unknown]
  - Nausea [Unknown]
  - Gastrointestinal motility disorder [Unknown]
  - Sleep disorder [Unknown]
  - Depression [Unknown]
